FAERS Safety Report 5089899-6 (Version None)
Quarter: 2006Q3

REPORT INFORMATION
  Report Type: 
  Country: None (occurrence: None)
  Receive Date: 20060727
  Receipt Date: 20060524
  Transmission Date: 20061208
  Serious: Yes (Other)
  Sender: FDA-Public Use
  Company Number: 2006069567

PATIENT
  Age: 79 Year
  Sex: 0
  Weight: 78.0187 kg

DRUGS (4)
  1. LYRICA [Suspect]
     Indication: ILL-DEFINED DISORDER
     Dosage: 150 MG (75 MG, 2 IN 1 D), ORAL
     Route: 048
     Dates: start: 20060514
  2. FUROSEMIDE [Concomitant]
  3. ATENOLOL [Concomitant]
  4. LANOXIN [Concomitant]

REACTIONS (2)
  - DIZZINESS [None]
  - INTERNATIONAL NORMALISED RATIO DECREASED [None]
